FAERS Safety Report 4465441-5 (Version None)
Quarter: 2004Q3

REPORT INFORMATION
  Report Type: 
  Country: None (occurrence: None)
  Receive Date: 20040930
  Receipt Date: 20040916
  Transmission Date: 20050211
  Serious: Yes (Other)
  Sender: FDA-Public Use
  Company Number: ZANA001349

PATIENT
  Age: 54 Year
  Sex: Female

DRUGS (5)
  1. TERNELIN (TIZANIDINE HYDROCHLORIDE) [Suspect]
     Indication: FACIAL PALSY
     Dosage: 3 TABLETS DAILY ORAL
     Route: 048
     Dates: start: 20040726, end: 20040802
  2. LUVOX [Concomitant]
  3. ZOLPIDEM TARTRATE [Concomitant]
  4. GASMOTIN (MOSAPRIDE CITRATE) [Concomitant]
  5. PROMAC (POLAPREZINC) [Concomitant]

REACTIONS (2)
  - BLOOD PRESSURE SYSTOLIC INCREASED [None]
  - EPILEPSY [None]
